FAERS Safety Report 5854705-6 (Version None)
Quarter: 2008Q3

REPORT INFORMATION
  Report Type: 
  Country: None (occurrence: None)
  Receive Date: 20080822
  Receipt Date: 20080812
  Transmission Date: 20090109
  Serious: Yes (Other)
  Sender: FDA-Public Use
  Company Number: US-PFIZER INC-2008067918

PATIENT
  Sex: Female
  Weight: 63.5 kg

DRUGS (7)
  1. LYRICA [Suspect]
     Indication: FIBROMYALGIA
  2. PRAVASTATIN [Concomitant]
  3. PAROXETINE HCL [Concomitant]
  4. ACETYLSALICYLIC ACID SRT [Concomitant]
  5. XANAX [Concomitant]
  6. PEPCID [Concomitant]
  7. FAMOTIDINE [Concomitant]

REACTIONS (4)
  - DRUG INEFFECTIVE [None]
  - ENERGY INCREASED [None]
  - HYPERTENSION [None]
  - WEIGHT INCREASED [None]
